FAERS Safety Report 25826665 (Version 2)
Quarter: 2025Q3

REPORT INFORMATION
  Report Type: Report from Study
  Country: US (occurrence: US)
  Receive Date: 20250920
  Receipt Date: 20250930
  Transmission Date: 20251020
  Serious: No
  Sender: ABBVIE
  Company Number: US-ABBVIE-6343934

PATIENT
  Age: 64 Year
  Sex: Female
  Weight: 55.791 kg

DRUGS (2)
  1. SKYRIZI [Suspect]
     Active Substance: RISANKIZUMAB-RZAA
     Indication: Psoriatic arthropathy
     Route: 058
     Dates: start: 2021, end: 2023
  2. SKYRIZI [Suspect]
     Active Substance: RISANKIZUMAB-RZAA
     Route: 058
     Dates: start: 20230508

REACTIONS (12)
  - Psoriasis [Not Recovered/Not Resolved]
  - Nervous system disorder [Unknown]
  - Neuralgia [Unknown]
  - Psoriatic arthropathy [Not Recovered/Not Resolved]
  - Fall [Not Recovered/Not Resolved]
  - Peripheral swelling [Unknown]
  - Pain in extremity [Unknown]
  - Therapeutic response shortened [Recovered/Resolved]
  - Arthritis [Not Recovered/Not Resolved]
  - Therapeutic response shortened [Recovered/Resolved]
  - Psoriatic arthropathy [Recovered/Resolved]
  - Therapeutic response shortened [Not Recovered/Not Resolved]

NARRATIVE: CASE EVENT DATE: 20210101
